APPROVED DRUG PRODUCT: RISPERIDONE
Active Ingredient: RISPERIDONE
Strength: 1MG/ML
Dosage Form/Route: SOLUTION;ORAL
Application: A078452 | Product #001 | TE Code: AA
Applicant: AUROBINDO PHARMA LTD
Approved: Sep 4, 2009 | RLD: No | RS: No | Type: RX